FAERS Safety Report 9964582 (Version 1)
Quarter: 2014Q1

REPORT INFORMATION
  Report Type: Spontaneous
  Country: US (occurrence: US)
  Receive Date: 20140305
  Receipt Date: 20140305
  Transmission Date: 20141002
  Serious: No
  Sender: FDA-Public Use
  Company Number: US-GILEAD-2012-0060441

PATIENT
  Age: 46 Year
  Sex: Female

DRUGS (2)
  1. EMTRIVA [Suspect]
     Indication: HIV INFECTION
  2. VIREAD [Suspect]
     Indication: HIV INFECTION

REACTIONS (2)
  - Hypoaesthesia [Unknown]
  - Hypoaesthesia oral [Unknown]
